FAERS Safety Report 9761268 (Version 1)
Quarter: 2013Q4

REPORT INFORMATION
  Report Type: Spontaneous
  Country: US (occurrence: US)
  Receive Date: 20131216
  Receipt Date: 20131216
  Transmission Date: 20140711
  Serious: No
  Sender: FDA-Public Use
  Company Number: US-FOUGERA-2013FO000175

PATIENT
  Age: 66 Year
  Sex: Female
  Weight: 60.38 kg

DRUGS (8)
  1. SOLARAZE [Suspect]
     Indication: ACTINIC KERATOSIS
     Route: 061
     Dates: start: 20130613
  2. MULTIVITAMINS [Concomitant]
     Indication: PRODUCT USED FOR UNKNOWN INDICATION
  3. COUMADIN [Concomitant]
     Indication: DEEP VEIN THROMBOSIS
  4. COUMADIN [Concomitant]
     Indication: PULMONARY EMBOLISM
  5. ORACEA [Concomitant]
     Indication: ACNE
  6. ORACEA [Concomitant]
     Indication: ROSACEA
  7. PROVIGIL [Concomitant]
     Indication: NARCOLEPSY
  8. ST. JOHN^S WORT [Concomitant]
     Indication: PRODUCT USED FOR UNKNOWN INDICATION

REACTIONS (1)
  - Application site dryness [Not Recovered/Not Resolved]
